FAERS Safety Report 21621070 (Version 1)
Quarter: 2022Q4

REPORT INFORMATION
  Report Type: Spontaneous
  Country: GB (occurrence: GB)
  Receive Date: 20221121
  Receipt Date: 20221121
  Transmission Date: 20230113
  Serious: Yes (Hospitalization)
  Sender: FDA-Public Use
  Company Number: None

PATIENT
  Sex: Male

DRUGS (11)
  1. CARBOPLATIN [Suspect]
     Active Substance: CARBOPLATIN
     Indication: Product used for unknown indication
  2. PEMETREXED [Suspect]
     Active Substance: PEMETREXED
     Indication: Product used for unknown indication
  3. HYDROXOCOBALAMIN [Suspect]
     Active Substance: HYDROXOCOBALAMIN
     Indication: Product used for unknown indication
     Dosage: 1 MG/ML
  4. BENZYDAMINE [Concomitant]
     Active Substance: BENZYDAMINE
     Dosage: 0.15% SUGAR FREE RINSE OR GARGLE USING 15 ML FOUR TIMES A DAY PRN
  5. DALTEPARIN [Concomitant]
     Active Substance: DALTEPARIN
     Dosage: 15,000 UNITS
  6. DEXAMETHASONE [Concomitant]
     Active Substance: DEXAMETHASONE
     Dosage: TAKE TWO TABLETS TWICE A DAY FOR 3 DAYS AS DIRECTED
     Dates: start: 20221108
  7. DOCUSATE [Concomitant]
     Active Substance: DOCUSATE
  8. DOMPERIDONE [Concomitant]
     Active Substance: DOMPERIDONE
     Dosage: 10MG PO (ONLY TAKING FOLIC ACID)
  9. ONDANSETRON [Concomitant]
     Active Substance: ONDANSETRON
     Dosage: 16 MG PO
  10. PEMBROLIZUMAB [Concomitant]
     Active Substance: PEMBROLIZUMAB
  11. SILDENAFIL [Concomitant]
     Active Substance: SILDENAFIL
     Dosage: 1/2 HALF TABLET TO ONE TO BE TAKEN AS DIRECTED

REACTIONS (1)
  - Neutropenic sepsis [Recovered/Resolved]
